FAERS Safety Report 10014220 (Version 3)
Quarter: 2014Q2

REPORT INFORMATION
  Report Type: Spontaneous
  Country: IT (occurrence: IT)
  Receive Date: 20140317
  Receipt Date: 20140602
  Transmission Date: 20141212
  Serious: Yes (Hospitalization)
  Sender: FDA-Public Use
  Company Number: IT-JNJFOC-20140303929

PATIENT
  Age: 66 Year
  Sex: Female
  Weight: 75 kg

DRUGS (2)
  1. HALDOL [Suspect]
     Indication: DRUG ABUSE
     Route: 048
     Dates: start: 20140306, end: 20140306
  2. XERISTAR [Suspect]
     Indication: DRUG ABUSE
     Route: 048
     Dates: start: 20140306, end: 20140306

REACTIONS (4)
  - Self injurious behaviour [Unknown]
  - Sopor [Unknown]
  - Intentional overdose [Unknown]
  - Drug abuse [Unknown]
